FAERS Safety Report 18068194 (Version 1)
Quarter: 2020Q3

REPORT INFORMATION
  Report Type: Spontaneous
  Country: US (occurrence: US)
  Receive Date: 20200724
  Receipt Date: 20200724
  Transmission Date: 20201103
  Serious: Yes (Hospitalization, Disabling, Other)
  Sender: FDA-Public Use
  Company Number: US-PURDUE-USA-2020-0159033

PATIENT
  Sex: Male

DRUGS (16)
  1. OXYCODONE HCL CR TABLETS (SIMILAR TO NDA 22?272) [Suspect]
     Active Substance: OXYCODONE HYDROCHLORIDE
     Indication: PAIN
     Dosage: UNKNOWN
     Route: 048
  2. ACETAMINOPHEN. [Concomitant]
     Active Substance: ACETAMINOPHEN
     Indication: PAIN
     Dosage: UNK, QID PRN
     Route: 065
  3. FUROSEMIDE. [Concomitant]
     Active Substance: FUROSEMIDE
     Indication: PRODUCT USED FOR UNKNOWN INDICATION
     Dosage: 20 MG, DAILY
     Route: 048
  4. VICODIN [Suspect]
     Active Substance: ACETAMINOPHEN\HYDROCODONE BITARTRATE
     Indication: PRODUCT USED FOR UNKNOWN INDICATION
     Dosage: UNKNOWN
     Route: 065
     Dates: start: 2001
  5. ASPIRIN (E.C.) [Concomitant]
     Active Substance: ASPIRIN
     Indication: PRODUCT USED FOR UNKNOWN INDICATION
     Dosage: 81 MG, DAILY
     Route: 048
  6. PREDNISONE. [Concomitant]
     Active Substance: PREDNISONE
     Indication: PRODUCT USED FOR UNKNOWN INDICATION
     Dosage: 30 MG, DAILY
     Route: 048
  7. CORTISPORIN                        /00271401/ [Concomitant]
     Indication: PRODUCT USED FOR UNKNOWN INDICATION
     Dosage: 3 GTT, QID
     Route: 065
  8. OXYCONTIN [Suspect]
     Active Substance: OXYCODONE HYDROCHLORIDE
     Indication: PAIN
     Dosage: UNKNOWN
     Route: 048
  9. COREG CR [Concomitant]
     Active Substance: CARVEDILOL PHOSPHATE
     Indication: PRODUCT USED FOR UNKNOWN INDICATION
     Dosage: 40 MG, DAILY
     Route: 048
  10. NORCO [Suspect]
     Active Substance: ACETAMINOPHEN\HYDROCODONE BITARTRATE
     Indication: PAIN
     Dosage: 10?325 MG, 1?2 TABLETS, Q4H?6H PRN
     Route: 065
     Dates: start: 2001
  11. POTASSIUM [Concomitant]
     Active Substance: POTASSIUM
     Indication: PRODUCT USED FOR UNKNOWN INDICATION
     Dosage: 75 MG, DAILY
     Route: 048
  12. PREDNISONE. [Concomitant]
     Active Substance: PREDNISONE
     Dosage: 20 MG, DAILY
     Route: 048
  13. HYDROCODONE BITARTRATE AND ACETAMINOPHEN [Suspect]
     Active Substance: ACETAMINOPHEN\HYDROCODONE BITARTRATE
     Indication: PAIN
     Dosage: 10?325 MG, 1?2 TABLETS, QID PRN
     Route: 048
     Dates: start: 2001
  14. HYDROCODONE BITARTRATE AND ACETAMINOPHEN [Suspect]
     Active Substance: ACETAMINOPHEN\HYDROCODONE BITARTRATE
     Dosage: 10?325, 1 TABLET, Q4H PRN
  15. GLUCOSAMINE W/CHONDROITIN SULF./MANGAN./VIT C [Concomitant]
     Indication: PRODUCT USED FOR UNKNOWN INDICATION
     Dosage: UNK, DAILY
     Route: 048
  16. PREDNISONE. [Concomitant]
     Active Substance: PREDNISONE
     Dosage: 10 MG, DAILY
     Route: 048

REACTIONS (55)
  - Abdominal pain [Unknown]
  - Attention deficit hyperactivity disorder [Unknown]
  - Otitis externa [Unknown]
  - Cough [Unknown]
  - Fall [Unknown]
  - Bursitis [Unknown]
  - Disability [Unknown]
  - Haemarthrosis [Unknown]
  - Hypovitaminosis [Unknown]
  - Patellofemoral pain syndrome [Unknown]
  - Exposure to communicable disease [Unknown]
  - Ligament sprain [Unknown]
  - Rotator cuff syndrome [Unknown]
  - Drug dependence [Unknown]
  - Carpal tunnel syndrome [Unknown]
  - Cardiac disorder [Unknown]
  - Osteonecrosis [Unknown]
  - Post-traumatic stress disorder [Unknown]
  - Helplessness [Unknown]
  - Hyperlipidaemia [Unknown]
  - Tendon injury [Unknown]
  - Joint injury [Unknown]
  - Ligament rupture [Unknown]
  - Muscle strain [Unknown]
  - Osteochondrosis [Unknown]
  - Coagulopathy [Unknown]
  - Osteoarthritis [Unknown]
  - Arthralgia [Unknown]
  - Bone hypertrophy [Unknown]
  - Learning disability [Unknown]
  - Anxiety [Unknown]
  - Exercise tolerance decreased [Unknown]
  - Meniscus injury [Unknown]
  - Injury [Unknown]
  - Joint effusion [Unknown]
  - Pain in extremity [Unknown]
  - Unevaluable event [Unknown]
  - Anaemia [Unknown]
  - Haematuria [Unknown]
  - Large intestine polyp [Unknown]
  - Arthritis [Unknown]
  - Sciatica [Unknown]
  - Peripheral nerve decompression [Unknown]
  - Major depression [Unknown]
  - Genital haemorrhage [Unknown]
  - Spinal stenosis [Unknown]
  - Cardiac valve disease [Unknown]
  - Suspiciousness [Unknown]
  - Haematoma [Unknown]
  - Impaired healing [Unknown]
  - Irritable bowel syndrome [Unknown]
  - Intervertebral disc disorder [Unknown]
  - Back pain [Unknown]
  - Epicondylitis [Unknown]
  - Developmental delay [Unknown]

NARRATIVE: CASE EVENT DATE: 2010
